FAERS Safety Report 4329599-0 (Version None)
Quarter: 2004Q2

REPORT INFORMATION
  Report Type: 
  Country: None (occurrence: None)
  Receive Date: 20040401
  Receipt Date: 20040324
  Transmission Date: 20050107
  Serious: Yes (Hospitalization)
  Sender: FDA-Public Use
  Company Number: FR-ROCHE-362473

PATIENT
  Age: 40 Year
  Sex: Male

DRUGS (5)
  1. ROCEPHIN [Suspect]
     Route: 030
     Dates: start: 20040217, end: 20040222
  2. KETEK [Suspect]
     Indication: DRUG USE FOR UNKNOWN INDICATION
     Route: 048
     Dates: start: 20040223, end: 20040224
  3. LODOZ [Suspect]
     Indication: HYPERTENSION
     Route: 048
     Dates: end: 20040224
  4. TAVANIC [Suspect]
     Indication: DRUG USE FOR UNKNOWN INDICATION
     Route: 065
     Dates: start: 20040223, end: 20040224
  5. FRACTAL [Suspect]
     Route: 048
     Dates: end: 20040224

REACTIONS (5)
  - CHEST X-RAY ABNORMAL [None]
  - CHLAMYDIAL INFECTION [None]
  - INFLAMMATION [None]
  - OEDEMA PERIPHERAL [None]
  - PURPURA [None]
